FAERS Safety Report 24535253 (Version 1)
Quarter: 2024Q4

REPORT INFORMATION
  Report Type: Spontaneous
  Country: US (occurrence: None)
  Receive Date: 20241021
  Receipt Date: 20241021
  Transmission Date: 20250115
  Serious: Yes (Other)
  Sender: Public
  Company Number: None

PATIENT
  Age: 62 Year
  Sex: Female
  Weight: 61.2 kg

DRUGS (3)
  1. DEVICE [Suspect]
     Active Substance: DEVICE
  2. XYLOCAINE [Suspect]
     Active Substance: LIDOCAINE HYDROCHLORIDE
  3. AFRIN [Suspect]
     Active Substance: OXYMETAZOLINE

REACTIONS (4)
  - Dizziness [None]
  - Vomiting [None]
  - Heart rate decreased [None]
  - Nausea [None]

NARRATIVE: CASE EVENT DATE: 20240906
